FAERS Safety Report 21187647 (Version 1)
Quarter: 2022Q3

REPORT INFORMATION
  Report Type: Spontaneous
  Country: JP (occurrence: JP)
  Receive Date: 20220808
  Receipt Date: 20220808
  Transmission Date: 20221026
  Serious: Yes (Other)
  Sender: FDA-Public Use
  Company Number: JP-MALLINCKRODT-T202204190

PATIENT
  Age: 5 Decade
  Sex: Male
  Weight: 70 kg

DRUGS (2)
  1. NITRIC OXIDE [Suspect]
     Active Substance: NITRIC OXIDE
     Indication: Right ventricular failure
     Dosage: 20 PPM (INHALATION)
     Route: 055
  2. NITRIC OXIDE [Suspect]
     Active Substance: NITRIC OXIDE
     Indication: Pulmonary hypertension

REACTIONS (3)
  - Hemiplegia [Unknown]
  - Cerebral infarction [Unknown]
  - Product use issue [Unknown]
